FAERS Safety Report 6170577-7 (Version None)
Quarter: 2009Q2

REPORT INFORMATION
  Report Type: 
  Country: None (occurrence: None)
  Receive Date: 20090428
  Receipt Date: 20090416
  Transmission Date: 20091009
  Serious: Yes (Other)
  Sender: FDA-Public Use
  Company Number: CA-PFIZER INC-2009199088

PATIENT

DRUGS (3)
  1. XALATAN [Suspect]
     Indication: INTRAOCULAR PRESSURE TEST
     Dosage: UNK
     Dates: start: 20081201, end: 20090301
  2. XALATAN [Suspect]
     Indication: OCULAR HYPERTENSION
  3. XALCOM [Suspect]
     Dosage: UNK
     Dates: start: 20090301

REACTIONS (2)
  - BLOOD PRESSURE DECREASED [None]
  - INTRAOCULAR PRESSURE INCREASED [None]
